FAERS Safety Report 6698181-2 (Version None)
Quarter: 2010Q2

REPORT INFORMATION
  Report Type: 
  Country: None (occurrence: None)
  Receive Date: 20100427
  Receipt Date: 20100415
  Transmission Date: 20101027
  Serious: Yes (Other)
  Sender: FDA-Public Use
  Company Number: FI-PFIZER INC-2010046678

PATIENT
  Age: 47 Year
  Sex: Male
  Weight: 90 kg

DRUGS (3)
  1. CHAMPIX [Suspect]
     Indication: SMOKING CESSATION THERAPY
     Dosage: 1 MG, 2X/DAY
     Dates: start: 20100327
  2. ATORVASTATIN CALCIUM [Suspect]
     Dosage: 40 MG, UNK
  3. PRIMASPAN [Concomitant]
     Dosage: UNK

REACTIONS (10)
  - ANXIETY [None]
  - CONSTIPATION [None]
  - DRUG DEPENDENCE [None]
  - DYSGEUSIA [None]
  - EUPHORIC MOOD [None]
  - IRRITABILITY [None]
  - MOOD ALTERED [None]
  - NAUSEA [None]
  - TEARFULNESS [None]
  - TREMOR [None]
